FAERS Safety Report 18483356 (Version 1)
Quarter: 2020Q4

REPORT INFORMATION
  Report Type: Not Available
  Country: None (occurrence: None)
  Receive Date: 20201109
  Receipt Date: 20201109
  Transmission Date: 20210114
  Serious: No
  Sender: FDA-Public Use
  Company Number: ROCHE-2568245

PATIENT
  Age: 25 Year

DRUGS (1)
  1. PULMOZYME [Suspect]
     Active Substance: DORNASE ALFA

REACTIONS (2)
  - No adverse event [None]
  - Pregnancy [None]

NARRATIVE: CASE EVENT DATE: 20200312
